FAERS Safety Report 17228155 (Version 1)
Quarter: 2020Q1

REPORT INFORMATION
  Report Type: Report from Study
  Country: JP (occurrence: JP)
  Receive Date: 20200103
  Receipt Date: 20200103
  Transmission Date: 20200409
  Serious: Yes (Other)
  Sender: FDA-Public Use
  Company Number: JP-ROCHE-2402904

PATIENT
  Age: 69 Year
  Sex: Male
  Weight: 74 kg

DRUGS (5)
  1. ATEZOLIZUMAB. [Suspect]
     Active Substance: ATEZOLIZUMAB
     Indication: LUNG ADENOCARCINOMA
     Route: 041
     Dates: start: 20180822, end: 20181002
  2. ESOMEPRAZOLE. [Suspect]
     Active Substance: ESOMEPRAZOLE MAGNESIUM
     Indication: LUNG ADENOCARCINOMA
     Route: 048
  3. NAIXAN [NAPROXEN] [Suspect]
     Active Substance: NAPROXEN
     Indication: LUNG ADENOCARCINOMA
     Route: 048
  4. FEBURIC [Suspect]
     Active Substance: FEBUXOSTAT
     Indication: PRODUCT USED FOR UNKNOWN INDICATION
     Route: 048
  5. ATEZOLIZUMAB. [Suspect]
     Active Substance: ATEZOLIZUMAB
     Route: 041
     Dates: start: 20190104, end: 20190215

REACTIONS (1)
  - Seronegative arthritis [Recovering/Resolving]

NARRATIVE: CASE EVENT DATE: 20181016
